FAERS Safety Report 15291844 (Version 1)
Quarter: 2018Q3

REPORT INFORMATION
  Report Type: Spontaneous
  Country: IT (occurrence: IT)
  Receive Date: 20180817
  Receipt Date: 20180817
  Transmission Date: 20181010
  Serious: Yes (Death)
  Sender: FDA-Public Use
  Company Number: IT-EXELIXIS-CABO-18014399

PATIENT
  Age: 69 Year
  Sex: Male

DRUGS (2)
  1. CABOMETYX [Suspect]
     Active Substance: CABOZANTINIB S-MALATE
     Indication: METASTATIC NEOPLASM
     Dosage: 60 MG, UNK
     Dates: start: 20180413
  2. FONDAPARINUX [Suspect]
     Active Substance: FONDAPARINUX

REACTIONS (4)
  - Tachycardia paroxysmal [Unknown]
  - Malignant neoplasm progression [Fatal]
  - Bronchial haemorrhage [Fatal]
  - Off label use [Unknown]
